FAERS Safety Report 5295788-4 (Version None)
Quarter: 2007Q2

REPORT INFORMATION
  Report Type: 
  Country: None (occurrence: None)
  Receive Date: 20070410
  Receipt Date: 20070410
  Transmission Date: 20071010
  Serious: No
  Sender: FDA-Public Use
  Company Number: None

PATIENT
  Age: 53 Year
  Weight: 95.2554 kg

DRUGS (1)
  1. DOSTINEX [Suspect]
     Indication: PROLACTINOMA
     Dosage: .75MG TWICE PER WEEK PO
     Route: 048
     Dates: start: 20000510, end: 20070410

REACTIONS (1)
  - MITRAL VALVE INCOMPETENCE [None]
